FAERS Safety Report 16184861 (Version 9)
Quarter: 2022Q2

REPORT INFORMATION
  Report Type: Spontaneous
  Country: US (occurrence: US)
  Receive Date: 20190411
  Receipt Date: 20220407
  Transmission Date: 20220721
  Serious: Yes (Other)
  Sender: FDA-Public Use
  Company Number: US-PFIZER INC-2019157352

PATIENT
  Age: 75 Year
  Sex: Female

DRUGS (2)
  1. TOVIAZ [Suspect]
     Active Substance: FESOTERODINE FUMARATE
     Indication: Bladder spasm
     Dosage: 8 MG, DAILY
     Route: 048
  2. TOVIAZ [Suspect]
     Active Substance: FESOTERODINE FUMARATE
     Indication: Bladder pain

REACTIONS (8)
  - Spinal fracture [Unknown]
  - Blindness [Unknown]
  - Cystitis [Unknown]
  - Off label use [Unknown]
  - Visual impairment [Unknown]
  - Gait disturbance [Unknown]
  - Headache [Unknown]
  - Drug hypersensitivity [Unknown]
